FAERS Safety Report 18665123 (Version 4)
Quarter: 2021Q1

REPORT INFORMATION
  Report Type: Report from Study
  Country: US (occurrence: US)
  Receive Date: 20201225
  Receipt Date: 20210309
  Transmission Date: 20210419
  Serious: Yes (Hospitalization)
  Sender: FDA-Public Use
  Company Number: US-EMD SERONO-9208403

PATIENT
  Age: 50 Year
  Sex: Female

DRUGS (1)
  1. MAVENCLAD [Suspect]
     Active Substance: CLADRIBINE
     Indication: MULTIPLE SCLEROSIS
     Dosage: YEAR ONE THERAPY
     Route: 048
     Dates: start: 20191023

REACTIONS (1)
  - COVID-19 pneumonia [Recovering/Resolving]

NARRATIVE: CASE EVENT DATE: 202012
